FAERS Safety Report 20746265 (Version 1)
Quarter: 2022Q2

REPORT INFORMATION
  Report Type: Spontaneous
  Country: US (occurrence: US)
  Receive Date: 20220425
  Receipt Date: 20220425
  Transmission Date: 20220721
  Serious: No
  Sender: FDA-Public Use
  Company Number: US-PFIZER INC-2021734357

PATIENT
  Age: 65 Year
  Sex: Female

DRUGS (2)
  1. LYRICA [Suspect]
     Active Substance: PREGABALIN
     Indication: Neuropathy peripheral
     Dosage: 600 MG, ONCE DAILY (MORNING)
  2. LYRICA [Suspect]
     Active Substance: PREGABALIN
     Dosage: 300 MG, TWICE DAILY (MORNING AND THEN 12 HOURS LATER)

REACTIONS (1)
  - Therapeutic product effect decreased [Unknown]
